FAERS Safety Report 7744058-0 (Version None)
Quarter: 2011Q3

REPORT INFORMATION
  Report Type: 
  Country: None (occurrence: None)
  Receive Date: 20110912
  Receipt Date: 20110908
  Transmission Date: 20111222
  Serious: Yes (Hospitalization, Other)
  Sender: FDA-Public Use
  Company Number: US-AMGEN-USASP2011046095

PATIENT
  Age: 81 Year
  Sex: Female
  Weight: 88.5 kg

DRUGS (6)
  1. METOPROLOL SUCCINATE [Concomitant]
  2. PRAVASTATIN [Concomitant]
  3. NPLATE [Suspect]
     Indication: IDIOPATHIC THROMBOCYTOPENIC PURPURA
     Dosage: 2 MUG/KG, QWK
     Dates: start: 20101101
  4. COLACE [Concomitant]
  5. FEOSOL [Concomitant]
     Dosage: 2 UNK, UNK
  6. COUMADIN [Concomitant]

REACTIONS (3)
  - PLATELET COUNT DECREASED [None]
  - DIVERTICULUM [None]
  - GASTROINTESTINAL HAEMORRHAGE [None]
